FAERS Safety Report 8686457 (Version 4)
Quarter: 2012Q4

REPORT INFORMATION
  Report Type: 
  Country: US (occurrence: US)
  Receive Date: 20120726
  Receipt Date: 20120829
  Transmission Date: 20130627
  Serious: Yes (Death)
  Sender: FDA-Public Use
  Company Number: US-JNJFOC-20120707953

PATIENT
  Age: 69 Year
  Sex: Male
  Weight: 81.65 kg

DRUGS (3)
  1. ROLAIDS [Suspect]
     Indication: GASTROOESOPHAGEAL REFLUX DISEASE
     Dosage: several times a day
     Route: 048
     Dates: end: 20120308
  2. ROLAIDS [Suspect]
     Indication: DYSPEPSIA
     Dosage: several times a day
     Route: 048
     Dates: end: 20120308
  3. METFORMIN [Concomitant]
     Indication: DIABETES MELLITUS
     Route: 065

REACTIONS (3)
  - Myocardial infarction [Fatal]
  - Product quality issue [Unknown]
  - Expired drug administered [Recovered/Resolved]
